FAERS Safety Report 5324966-0 (Version None)
Quarter: 2007Q2

REPORT INFORMATION
  Report Type: 
  Country: None (occurrence: None)
  Receive Date: 20070510
  Receipt Date: 20070510
  Transmission Date: 20071010
  Serious: Yes (Hospitalization)
  Sender: FDA-Public Use
  Company Number: None

PATIENT
  Age: 60 Year
  Sex: Male

DRUGS (12)
  1. METHYLPREDNISOLONE 16MG TAB [Suspect]
     Indication: CHRONIC OBSTRUCTIVE PULMONARY DISEASE
     Dosage: 4MG QID PO
     Route: 048
     Dates: start: 20061230, end: 20070102
  2. ASPIRIN [Concomitant]
  3. FORMOTEROL FUMARATE [Concomitant]
  4. HYDROCHLOROTHIAZIDE [Concomitant]
  5. ISOSORBIDE MONONITRATE [Concomitant]
  6. LEVALBUTEROL HCL [Concomitant]
  7. METOPROLOL TARTRATE [Concomitant]
  8. OMEPRAZOLE [Concomitant]
  9. SIMVASTATIN [Concomitant]
  10. TERAZOSIN HCL [Concomitant]
  11. TIOTROPIUM [Concomitant]
  12. TRAZODONE HCL [Concomitant]

REACTIONS (2)
  - CHRONIC OBSTRUCTIVE PULMONARY DISEASE [None]
  - HALLUCINATION [None]
